FAERS Safety Report 19452650 (Version 2)
Quarter: 2021Q3

REPORT INFORMATION
  Report Type: Spontaneous
  Country: ES (occurrence: ES)
  Receive Date: 20210623
  Receipt Date: 20210712
  Transmission Date: 20211014
  Serious: Yes (Other)
  Sender: FDA-Public Use
  Company Number: ES-AUROBINDO-AUR-APL-2021-025877

PATIENT
  Age: 59 Year
  Sex: Female
  Weight: 126 kg

DRUGS (6)
  1. CIPROFLOXACIN. [Suspect]
     Active Substance: CIPROFLOXACIN
     Indication: TUMOUR ULCERATION
     Dosage: 500 MILLIGRAM, TWO TIMES A DAY
     Route: 065
     Dates: start: 20200724, end: 20200807
  2. ALPELISIB [Suspect]
     Active Substance: ALPELISIB
     Dosage: 250 MILLIGRAM, ONCE A DAY
     Route: 065
     Dates: start: 20200826
  3. ALPELISIB [Suspect]
     Active Substance: ALPELISIB
     Indication: BREAST CANCER METASTATIC
     Dosage: 300 MILLIGRAM
     Route: 048
     Dates: start: 20200703
  4. FULVESTRANT. [Concomitant]
     Active Substance: FULVESTRANT
     Indication: PRODUCT USED FOR UNKNOWN INDICATION
     Dosage: UNK
     Route: 065
  5. CIPROFLOXACIN. [Suspect]
     Active Substance: CIPROFLOXACIN
     Indication: SUPERINFECTION
     Dosage: 500 MILLIGRAM, TWO TIMES A DAY (500 MG, Q12H)
     Route: 065
     Dates: start: 20201209, end: 20201209
  6. ALPELISIB [Suspect]
     Active Substance: ALPELISIB
     Dosage: 300 MILLIGRAM, ONCE A DAY
     Route: 065
     Dates: start: 20200704, end: 20200807

REACTIONS (6)
  - Rash [Recovered/Resolved]
  - Superinfection [Recovered/Resolved]
  - Tumour ulceration [Unknown]
  - Stomatitis [Recovered/Resolved]
  - Hyperglycaemia [Recovered/Resolved]
  - Dermatitis [Unknown]

NARRATIVE: CASE EVENT DATE: 20200710
